FAERS Safety Report 4829409-9 (Version None)
Quarter: 2005Q4

REPORT INFORMATION
  Report Type: 
  Country: None (occurrence: None)
  Receive Date: 20051028
  Receipt Date: 20050621
  Transmission Date: 20060501
  Serious: No
  Sender: FDA-Public Use
  Company Number: US139623

PATIENT
  Age: 49 Year
  Sex: Female

DRUGS (10)
  1. SENSIPAR [Suspect]
     Indication: HYPERPARATHYROIDISM SECONDARY
     Dosage: 60 MG, 1 IN 1 DAY, PO
     Route: 048
     Dates: start: 20050602, end: 20050620
  2. CALCITRIOL [Concomitant]
  3. EPOGEN (EPOETIN ALFA) (EPOETIN ALFA) [Concomitant]
  4. METOPROLOL TARTRATE [Concomitant]
  5. SEVELAMER HCL [Concomitant]
  6. NEPHRO-VITE [Concomitant]
  7. LACTULOSE [Concomitant]
  8. MUPIROCIN [Concomitant]
  9. VENOFER [Concomitant]
  10. HEPATITIS B VACCINE [Concomitant]

REACTIONS (1)
  - PARAESTHESIA [None]
